FAERS Safety Report 7353957-3 (Version None)
Quarter: 2011Q1

REPORT INFORMATION
  Report Type: 
  Country: None (occurrence: None)
  Receive Date: 20110315
  Receipt Date: 20110301
  Transmission Date: 20110831
  Serious: Yes (Other)
  Sender: FDA-Public Use
  Company Number: PHHY2011CA18141

PATIENT

DRUGS (4)
  1. DIURETICS [Concomitant]
  2. ACE INHIBITOR NOS [Concomitant]
  3. ALISKIREN [Suspect]
  4. BETA BLOCKING AGENTS [Concomitant]

REACTIONS (3)
  - VERTIGO [None]
  - FALL [None]
  - CONFUSIONAL STATE [None]
